FAERS Safety Report 15433367 (Version 1)
Quarter: 2018Q3

REPORT INFORMATION
  Report Type: Report from Study
  Country: RU (occurrence: RU)
  Receive Date: 20180927
  Receipt Date: 20180927
  Transmission Date: 20181010
  Serious: Yes (Death)
  Sender: FDA-Public Use
  Company Number: RU-ASTRAZENECA-2018SE77641

PATIENT
  Age: 63 Year
  Sex: Female
  Weight: 86 kg

DRUGS (5)
  1. FORXIGA [Suspect]
     Active Substance: DAPAGLIFLOZIN
     Indication: TYPE 2 DIABETES MELLITUS
     Route: 048
     Dates: start: 201611
  2. CONCOR [Concomitant]
     Active Substance: BISOPROLOL FUMARATE
  3. LOZAP [Concomitant]
  4. GALVUS MET [Concomitant]
     Active Substance: METFORMIN HYDROCHLORIDE\VILDAGLIPTIN
  5. DIABETON MB [Concomitant]
     Active Substance: GLICLAZIDE

REACTIONS (2)
  - Death [Fatal]
  - Vulvovaginal candidiasis [Not Recovered/Not Resolved]
